FAERS Safety Report 19963317 (Version 1)
Quarter: 2021Q4

REPORT INFORMATION
  Report Type: Spontaneous
  Country: US (occurrence: US)
  Receive Date: 20211017
  Receipt Date: 20211017
  Transmission Date: 20220303
  Serious: Yes (Other)
  Sender: FDA-Public Use
  Company Number: None

PATIENT

DRUGS (1)
  1. CEPHALEXIN [Suspect]
     Active Substance: CEPHALEXIN
     Indication: Staphylococcal infection
     Dosage: ?          QUANTITY:40 TABLET(S);
     Route: 048
     Dates: start: 20211014, end: 20211015

REACTIONS (3)
  - Rash morbilliform [None]
  - Skin tightness [None]
  - Pain of skin [None]

NARRATIVE: CASE EVENT DATE: 20211016
